FAERS Safety Report 6400742-2 (Version None)
Quarter: 2009Q4

REPORT INFORMATION
  Report Type: 
  Country: None (occurrence: None)
  Receive Date: 20091014
  Receipt Date: 20091006
  Transmission Date: 20100525
  Serious: Yes (Life-Threatening, Hospitalization, Other)
  Sender: FDA-Public Use
  Company Number: US-CELGENEUS-163-20785-09051130

PATIENT
  Sex: Female

DRUGS (2)
  1. THALOMID [Suspect]
     Indication: MULTIPLE MYELOMA
     Route: 048
     Dates: start: 20090114, end: 20090520
  2. ANTIBIOTICS [Concomitant]
     Indication: DRUG USE FOR UNKNOWN INDICATION
     Route: 065

REACTIONS (6)
  - ASTHENIA [None]
  - BLINDNESS [None]
  - CONFUSIONAL STATE [None]
  - DISEASE PROGRESSION [None]
  - MULTIPLE MYELOMA [None]
  - STAPHYLOCOCCAL SEPSIS [None]
